FAERS Safety Report 8831079 (Version 1)
Quarter: 2012Q4

REPORT INFORMATION
  Report Type: 
  Country: DE (occurrence: DE)
  Receive Date: 20121008
  Receipt Date: 20121008
  Transmission Date: 20130627
  Serious: Yes (Hospitalization)
  Sender: FDA-Public Use
  Company Number: DE-009507513-1210DEU001583

PATIENT
  Sex: Male

DRUGS (6)
  1. INEGY [Suspect]
     Indication: BLOOD CHOLESTEROL INCREASED
     Dosage: UNK
     Route: 048
     Dates: start: 20120901, end: 20120914
  2. SIMVASTATIN [Suspect]
     Indication: BLOOD CHOLESTEROL INCREASED
     Dosage: UNK
     Dates: end: 20120831
  3. BETALOC ZOK [Concomitant]
     Route: 048
  4. ENALAPRIL MALEATE [Concomitant]
     Route: 048
  5. METFORMIN [Concomitant]
     Dosage: UNK
     Route: 048
     Dates: end: 201206
  6. ASPIRIN PROTECT [Concomitant]
     Route: 048

REACTIONS (3)
  - Drug hypersensitivity [Unknown]
  - Rash generalised [Unknown]
  - Muscle spasms [None]
